FAERS Safety Report 9442088 (Version 1)
Quarter: 2013Q3

REPORT INFORMATION
  Report Type: Spontaneous
  Country: FR (occurrence: FR)
  Receive Date: 20130806
  Receipt Date: 20130806
  Transmission Date: 20140515
  Serious: Yes (Other)
  Sender: FDA-Public Use
  Company Number: FR-US-EMD SERONO, INC.-7227243

PATIENT
  Age: 49 Year
  Sex: Female
  Weight: 59 kg

DRUGS (2)
  1. REBIF [Suspect]
     Indication: MULTIPLE SCLEROSIS
     Route: 058
  2. XYZALL                             /01530201/ [Concomitant]
     Indication: HYPERSENSITIVITY
     Route: 048

REACTIONS (3)
  - Anal cancer [Recovering/Resolving]
  - Injection site mass [Not Recovered/Not Resolved]
  - Injection site pain [Recovering/Resolving]
